FAERS Safety Report 16221384 (Version 1)
Quarter: 2019Q2

REPORT INFORMATION
  Report Type: Spontaneous
  Country: CH (occurrence: CH)
  Receive Date: 20190422
  Receipt Date: 20190422
  Transmission Date: 20190711
  Serious: Yes (Other)
  Sender: FDA-Public Use
  Company Number: CH-TEVA-2019-CH-1040125

PATIENT
  Age: 88 Year
  Sex: Male

DRUGS (19)
  1. IPRAMOL [Suspect]
     Active Substance: ALBUTEROL SULFATE\IPRATROPIUM BROMIDE
     Dosage: AS NECESSARY
     Route: 055
     Dates: start: 20190227
  2. CETIRIZINE [Suspect]
     Active Substance: CETIRIZINE HYDROCHLORIDE
     Dosage: 10 MILLIGRAM DAILY;
     Dates: start: 20190303, end: 20190312
  3. LAXOBERON [Concomitant]
     Active Substance: SODIUM PICOSULFATE
     Dates: start: 20190301
  4. DEXERYL (GLYCEROL AND WHITE SOFT PARAFFIN AND LIQUID PARAFFIN) [Concomitant]
     Active Substance: GLYCERIN\MINERAL OIL\PETROLATUM
     Dates: start: 20190306
  5. TAVANIC [Concomitant]
     Active Substance: LEVOFLOXACIN
     Dates: start: 20190303, end: 20190306
  6. CLARITHROMYCIN. [Concomitant]
     Active Substance: CLARITHROMYCIN
     Dates: start: 20190227, end: 20190301
  7. AMLODIPINE [Suspect]
     Active Substance: AMLODIPINE BESYLATE
     Dosage: 10 MILLIGRAM DAILY; AT HOME
     Route: 048
  8. CLEXANE 40 MG [Suspect]
     Active Substance: ENOXAPARIN SODIUM
     Dosage: 40 MILLIGRAM DAILY;
     Route: 058
     Dates: start: 20190228, end: 20190308
  9. CO-EPRIL [Concomitant]
     Active Substance: ENALAPRIL MALEATE\HYDROCHLOROTHIAZIDE
     Dosage: AT HOME
  10. IPRAMOL [Suspect]
     Active Substance: ALBUTEROL SULFATE\IPRATROPIUM BROMIDE
     Dosage: 4 DOSAGE FORMS DAILY;
     Route: 055
     Dates: start: 20190227
  11. ASPIRIN CARDIO [Suspect]
     Active Substance: ASPIRIN
     Dosage: 100 MILLIGRAM DAILY; AT HOME
     Dates: end: 20190311
  12. PRADIF T [Concomitant]
     Active Substance: TAMSULOSIN HYDROCHLORIDE
     Dates: start: 20190301
  13. CO-AMOXI [Suspect]
     Active Substance: AMOXICILLIN\CLAVULANATE POTASSIUM
     Dosage: 3 GRAM DAILY;
     Route: 048
     Dates: start: 20190228, end: 20190303
  14. TRAJENTA [Concomitant]
     Active Substance: LINAGLIPTIN
     Dosage: AT HOME
  15. PREDNISONE. [Concomitant]
     Active Substance: PREDNISONE
     Dates: start: 20190313, end: 20190317
  16. DAFALGAN [Concomitant]
     Active Substance: ACETAMINOPHEN
     Dosage: AS NECESSARY ON DEMAND
     Dates: start: 20190227
  17. CLYSSIE [Concomitant]
     Dosage: AS NECESSARY ON DEMAND
     Dates: start: 20190304
  18. CO-AMOXI [Suspect]
     Active Substance: AMOXICILLIN\CLAVULANATE POTASSIUM
     Dosage: 3.6 GRAM DAILY;
     Route: 042
     Dates: start: 20190227, end: 20190228
  19. ATORVASTATINE [Concomitant]
     Active Substance: ATORVASTATIN
     Dosage: AT HOME
     Dates: start: 2011, end: 20190313

REACTIONS (4)
  - Eczema [Recovered/Resolved]
  - Urinary retention [Recovered/Resolved]
  - Hyperleukocytosis [Not Recovered/Not Resolved]
  - Eosinophilia [Recovered/Resolved]

NARRATIVE: CASE EVENT DATE: 20190301
